FAERS Safety Report 16430679 (Version 5)
Quarter: 2019Q3

REPORT INFORMATION
  Report Type: Report from Study
  Country: FR (occurrence: FR)
  Receive Date: 20190614
  Receipt Date: 20190723
  Transmission Date: 20191004
  Serious: Yes (Hospitalization, Other)
  Sender: FDA-Public Use
  Company Number: FR-ROCHE-2332386

PATIENT
  Age: 75 Year
  Sex: Female

DRUGS (19)
  1. SERESTA [Concomitant]
     Active Substance: OXAZEPAM
  2. CALCIUM D3 [Concomitant]
     Active Substance: CALCIUM\CHOLECALCIFEROL
  3. IPRATROPIUM [Concomitant]
     Active Substance: IPRATROPIUM
  4. DIFFU K [Concomitant]
     Active Substance: POTASSIUM CHLORIDE
  5. PREDNISONE. [Concomitant]
     Active Substance: PREDNISONE
  6. PANTOPRAZOLE [Concomitant]
     Active Substance: PANTOPRAZOLE
  7. SALBUTAMOL [Concomitant]
     Active Substance: ALBUTEROL
  8. COVERAM [Concomitant]
     Active Substance: AMLODIPINE\PERINDOPRIL
  9. VITAMINE D [Concomitant]
     Active Substance: CHOLECALCIFEROL
  10. SETOFILM [Concomitant]
     Active Substance: ONDANSETRON
  11. PERTUZUMAB. [Suspect]
     Active Substance: PERTUZUMAB
     Indication: NON-SMALL CELL LUNG CANCER
     Route: 065
  12. APIDRA [Concomitant]
     Active Substance: INSULIN GLULISINE
  13. LOPERAMIDE [Concomitant]
     Active Substance: LOPERAMIDE
  14. TRASTUZUMAB EMTANSINE [Suspect]
     Active Substance: ADO-TRASTUZUMAB EMTANSINE
     Indication: NON-SMALL CELL LUNG CANCER
     Dosage: DATE OF LAST ADMINISTRATION OF STUDY TREATMENT 18/JUN/2019
     Route: 042
     Dates: start: 20190520
  15. LEVOTHYROXINE. [Concomitant]
     Active Substance: LEVOTHYROXINE
  16. METFORMINE [METFORMIN] [Concomitant]
     Active Substance: METFORMIN HYDROCHLORIDE
  17. RACECADOTRIL [Concomitant]
     Active Substance: RACECADOTRIL
  18. PARACETAMOL [Concomitant]
     Active Substance: ACETAMINOPHEN
  19. DOCETAXEL. [Suspect]
     Active Substance: DOCETAXEL
     Indication: NON-SMALL CELL LUNG CANCER
     Route: 065

REACTIONS (7)
  - Diarrhoea [Recovered/Resolved]
  - Acute kidney injury [Recovered/Resolved]
  - Anaemia [Not Recovered/Not Resolved]
  - Dehydration [Recovered/Resolved]
  - Urinary tract infection [Recovered/Resolved]
  - Device related infection [Recovered/Resolved with Sequelae]
  - Pyrexia [Recovered/Resolved]

NARRATIVE: CASE EVENT DATE: 20190521
